FAERS Safety Report 13778289 (Version 1)
Quarter: 2017Q3

REPORT INFORMATION
  Report Type: Spontaneous
  Country: US (occurrence: US)
  Receive Date: 20170721
  Receipt Date: 20170721
  Transmission Date: 20171127
  Serious: No
  Sender: FDA-Public Use
  Company Number: US-TEVA-718581ACC

PATIENT
  Sex: Female
  Weight: 52 kg

DRUGS (1)
  1. DEXTROAMPHETAMINE ER 15MG CAPS MAYNE [Suspect]
     Active Substance: DEXTROAMPHETAMINE SULFATE

REACTIONS (2)
  - Drug ineffective [Unknown]
  - Product physical issue [Unknown]
